FAERS Safety Report 21351289 (Version 3)
Quarter: 2023Q2

REPORT INFORMATION
  Report Type: Report from Study
  Country: AT (occurrence: AT)
  Receive Date: 20220919
  Receipt Date: 20230410
  Transmission Date: 20230721
  Serious: Yes (Other)
  Sender: FDA-Public Use
  Company Number: AT-EMA-DD-20220810-225465-133428

PATIENT
  Age: 49 Year
  Sex: Female
  Weight: 55 kg

DRUGS (15)
  1. TRASTUZUMAB [Suspect]
     Active Substance: TRASTUZUMAB
     Indication: HER2 positive breast cancer
     Dosage: 330 MG EVERY 3 WEEKS,MOST RECENT DOSE 18/SEP/2019
     Route: 042
     Dates: start: 20181113, end: 20190918
  2. TRASTUZUMAB [Suspect]
     Active Substance: TRASTUZUMAB
     Indication: Breast cancer
     Dosage: 330 MG EVERY 4 WEEKS
     Route: 042
     Dates: start: 20190918
  3. PACLITAXEL [Suspect]
     Active Substance: PACLITAXEL
     Indication: Breast cancer
     Dosage: MOST RECENT DOSE WAS RECEIVED ON 15/MAY/2019)
     Route: 042
     Dates: start: 20181205, end: 20190515
  4. PACLITAXEL [Suspect]
     Active Substance: PACLITAXEL
     Indication: HER2 positive breast cancer
  5. PACLITAXEL [Suspect]
     Active Substance: PACLITAXEL
     Indication: HER2 positive breast cancer
     Dosage: 199 MG, QW (RECENT DOSE RECEIVED ON 15/MAY/2019)
     Route: 042
     Dates: start: 20181215
  6. EXEMESTANE [Suspect]
     Active Substance: EXEMESTANE
     Indication: Breast cancer
     Dosage: 25 MG (FREQUENCY: O.D. - ONCE DAILY), QD
     Route: 048
     Dates: start: 20181108
  7. EXEMESTANE [Suspect]
     Active Substance: EXEMESTANE
     Indication: HER2 positive breast cancer
     Dosage: UNK
     Route: 065
  8. PERTUZUMAB [Suspect]
     Active Substance: PERTUZUMAB
     Indication: Breast cancer
     Dosage: 420 MILLIGRAM EVERY 3 WEEKS
     Route: 042
     Dates: start: 20181113, end: 20190918
  9. PERTUZUMAB [Suspect]
     Active Substance: PERTUZUMAB
     Indication: HER2 positive breast cancer
     Dosage: 420 MG EVERY 4 WEEKS
     Route: 042
     Dates: start: 20190918
  10. DENOSUMAB [Suspect]
     Active Substance: DENOSUMAB
     Indication: HER2 positive breast cancer
     Dosage: 120 MG EVERY 4 WEEKS
     Route: 058
     Dates: start: 20190104
  11. PACLITAXEL [Suspect]
     Active Substance: PACLITAXEL
     Indication: HER2 positive breast cancer
     Dosage: 199 MG; WEEKLY, QW
     Route: 042
     Dates: start: 20181205, end: 20190515
  12. DIAZEPAM [Concomitant]
     Active Substance: DIAZEPAM
     Dosage: ONGOING = CHECKED
     Route: 065
     Dates: start: 20181108
  13. PREGABALIN [Concomitant]
     Active Substance: PREGABALIN
     Dosage: ONGOING = CHECKED
     Route: 065
  14. Oleovit [Concomitant]
     Dosage: ONGOING = CHECKED
     Route: 065
     Dates: start: 20181108
  15. PANTOPRAZOLE [Concomitant]
     Active Substance: PANTOPRAZOLE
     Dosage: ONGOING = CHECKED
     Route: 065
     Dates: start: 20181108

REACTIONS (4)
  - Polyneuropathy [Recovered/Resolved]
  - Arthralgia [Recovered/Resolved]
  - Stomatitis [Recovered/Resolved]
  - Off label use [Unknown]

NARRATIVE: CASE EVENT DATE: 20181207
